FAERS Safety Report 4909980-9 (Version None)
Quarter: 2006Q1

REPORT INFORMATION
  Report Type: 
  Country: None (occurrence: None)
  Receive Date: 20060208
  Receipt Date: 20060126
  Transmission Date: 20060701
  Serious: Yes (Other)
  Sender: FDA-Public Use
  Company Number: 2004114149

PATIENT
  Age: 75 Year
  Sex: Female

DRUGS (3)
  1. SOMAVERT [Suspect]
     Indication: ACROMEGALY
     Dosage: 10 MG (10 MG, 1 IN 1 D); SUBCUTANEOUS
     Route: 058
     Dates: start: 20031127
  2. SANDOSTATIN [Concomitant]
  3. PRAVIDEL (BROMOCRIPTINE MESILATE) [Concomitant]

REACTIONS (1)
  - NO ADVERSE EFFECT [None]
